FAERS Safety Report 13397602 (Version 4)
Quarter: 2017Q2

REPORT INFORMATION
  Report Type: Spontaneous
  Country: KZ (occurrence: KZ)
  Receive Date: 20170403
  Receipt Date: 20170522
  Transmission Date: 20170830
  Serious: Yes (Death, Hospitalization, Other)
  Sender: FDA-Public Use
  Company Number: KZ-JNJFOC-20170333995

PATIENT
  Age: 39 Year
  Sex: Male

DRUGS (38)
  1. BIFIFORM [Concomitant]
     Active Substance: BIFIDOBACTERIUM LONGUM
     Route: 065
  2. MAGNESIUM SULFATE. [Concomitant]
     Active Substance: MAGNESIUM SULFATE
     Route: 042
  3. ASCORBIC ACID. [Concomitant]
     Active Substance: ASCORBIC ACID
     Route: 065
  4. PREDNISOLONE. [Concomitant]
     Active Substance: PREDNISOLONE
     Route: 041
  5. PREDNISOLONE. [Concomitant]
     Active Substance: PREDNISOLONE
     Route: 065
  6. ASCORBIC ACID. [Concomitant]
     Active Substance: ASCORBIC ACID
     Route: 030
  7. NICOTINIC ACID [Concomitant]
     Active Substance: NIACIN
     Route: 030
  8. RHEOPOLYGLUCINUM [Concomitant]
     Route: 041
  9. PENTOXIFYLLINE. [Concomitant]
     Active Substance: PENTOXIFYLLINE
     Route: 042
  10. KETOTIFEN [Concomitant]
     Active Substance: KETOTIFEN
     Route: 065
  11. TRENTAL [Concomitant]
     Active Substance: PENTOXIFYLLINE
     Route: 042
  12. DIGOXIN. [Concomitant]
     Active Substance: DIGOXIN
     Route: 065
  13. FLUCONAZOLE. [Concomitant]
     Active Substance: FLUCONAZOLE
     Route: 065
  14. HYLAK FORTE [Concomitant]
     Route: 065
  15. VITAMIN B6 [Concomitant]
     Active Substance: PYRIDOXINE HYDROCHLORIDE
     Route: 041
  16. BEDAQUILINE [Suspect]
     Active Substance: BEDAQUILINE
     Indication: TUBERCULOSIS
     Route: 048
     Dates: start: 20160423, end: 20170301
  17. MOXIFLOXACIN. [Suspect]
     Active Substance: MOXIFLOXACIN
     Indication: TUBERCULOSIS
     Route: 065
     Dates: start: 20160423, end: 20170301
  18. CLOFAZIMINE [Suspect]
     Active Substance: CLOFAZIMINE
     Indication: TUBERCULOSIS
     Route: 065
     Dates: start: 20160423, end: 20170301
  19. FUROSEMIDE. [Concomitant]
     Active Substance: FUROSEMIDE
     Route: 042
  20. FUROSEMIDE. [Concomitant]
     Active Substance: FUROSEMIDE
     Route: 030
  21. LINEZOLID. [Suspect]
     Active Substance: LINEZOLID
     Indication: TUBERCULOSIS
     Route: 065
     Dates: start: 20160423, end: 20170211
  22. KETOROLAC [Concomitant]
     Active Substance: KETOROLAC\KETOROLAC TROMETHAMINE
     Route: 065
  23. CREON [Concomitant]
     Active Substance: PANCRELIPASE AMYLASE\PANCRELIPASE LIPASE\PANCRELIPASE PROTEASE
     Route: 065
  24. ATROPINE SULFATE. [Concomitant]
     Active Substance: ATROPINE SULFATE
     Route: 058
  25. PYRAZINAMIDE. [Suspect]
     Active Substance: PYRAZINAMIDE
     Indication: TUBERCULOSIS
     Route: 065
     Dates: start: 20160423, end: 20170301
  26. HEPARIN [Concomitant]
     Active Substance: HEPARIN SODIUM
     Route: 058
  27. PREDNISOLONE. [Concomitant]
     Active Substance: PREDNISOLONE
     Route: 065
  28. OMEPRAZOLE. [Concomitant]
     Active Substance: OMEPRAZOLE
     Route: 065
  29. ACECLOREN [Concomitant]
     Route: 065
  30. SODIUM CHLORIDE. [Concomitant]
     Active Substance: SODIUM CHLORIDE
     Route: 041
  31. PREDNISOLONE. [Concomitant]
     Active Substance: PREDNISOLONE
     Route: 041
  32. LOPERAMIDE [Concomitant]
     Active Substance: LOPERAMIDE
     Route: 065
  33. KETOPROFEN. [Concomitant]
     Active Substance: KETOPROFEN
     Route: 065
  34. SODIUM CHLORIDE. [Concomitant]
     Active Substance: SODIUM CHLORIDE
     Route: 041
  35. GLUCOSE [Concomitant]
     Active Substance: DEXTROSE
     Route: 041
  36. TAFIL [Concomitant]
     Active Substance: ALPRAZOLAM
     Route: 065
  37. CALCIUM CHLORIDE. [Concomitant]
     Active Substance: CALCIUM CHLORIDE
     Route: 042
  38. EUPHYLLINUM [Concomitant]
     Route: 041

REACTIONS (2)
  - Cor pulmonale acute [Fatal]
  - Asthma [Unknown]

NARRATIVE: CASE EVENT DATE: 20161212
